FAERS Safety Report 10442193 (Version 1)
Quarter: 2014Q3

REPORT INFORMATION
  Report Type: Spontaneous
  Country: US (occurrence: None)
  Receive Date: 20140701
  Receipt Date: 20140701
  Transmission Date: 20150326
  Serious: No
  Sender: FDA-Public Use
  Company Number: 1000051423

PATIENT
  Age: 65 Year
  Sex: Male

DRUGS (3)
  1. LINZESS [Suspect]
     Active Substance: LINACLOTIDE
     Indication: CONSTIPATION
     Dosage: 1 IN 1 D
     Route: 048
     Dates: start: 20131112, end: 20131112
  2. VICODIN [Concomitant]
     Active Substance: ACETAMINOPHEN\HYDROCODONE BITARTRATE
  3. XANAX [Concomitant]
     Active Substance: ALPRAZOLAM

REACTIONS (3)
  - Abdominal distension [None]
  - Abdominal pain upper [None]
  - Flatulence [None]

NARRATIVE: CASE EVENT DATE: 20131112
